FAERS Safety Report 5720836-4 (Version None)
Quarter: 2008Q2

REPORT INFORMATION
  Report Type: 
  Country: None (occurrence: None)
  Receive Date: 20080429
  Receipt Date: 20080424
  Transmission Date: 20081010
  Serious: Yes (Disabling)
  Sender: FDA-Public Use
  Company Number: PHRM2008FR01382

PATIENT
  Age: 51 Year
  Sex: Male

DRUGS (2)
  1. TEGRETOL [Suspect]
     Indication: EPILEPSY
     Dosage: 400 MG, BID
     Route: 048
  2. TEGRETOL [Suspect]
     Indication: EPILEPSY
     Dosage: 200 MG, QD
     Route: 048

REACTIONS (1)
  - INTERVERTEBRAL DISC DISORDER [None]
